FAERS Safety Report 24352149 (Version 1)
Quarter: 2024Q3

REPORT INFORMATION
  Report Type: Report from Study
  Country: EG (occurrence: EG)
  Receive Date: 20240923
  Receipt Date: 20240923
  Transmission Date: 20241016
  Serious: No
  Sender: ROCHE
  Company Number: EG-ROCHE-3020005

PATIENT
  Age: 55 Year
  Sex: Female

DRUGS (8)
  1. HERCEPTIN [Suspect]
     Active Substance: TRASTUZUMAB
     Indication: Breast cancer metastatic
     Dosage: NUMBER OF CYCLES PER REGIMEN: 17 (PLANNED CYCLES COMPLETED)
     Route: 041
     Dates: start: 20190808, end: 20200920
  2. TYKERB [Suspect]
     Active Substance: LAPATINIB DITOSYLATE
     Indication: Breast cancer metastatic
     Route: 048
     Dates: start: 20210904
  3. TAXOL [Suspect]
     Active Substance: PACLITAXEL
     Indication: Breast cancer metastatic
     Dosage: FREQUENCY TEXT:D1,8,15 EVERY 28 DAYS
     Route: 042
     Dates: start: 20190808, end: 20200206
  4. FASLODEX [Suspect]
     Active Substance: FULVESTRANT
     Indication: Breast cancer metastatic
     Dosage: FREQUENCY TEXT:DAY 1,15,29 IN FIRST MONTH THEN MONTHLY
     Route: 030
     Dates: start: 20210914
  5. ARIMIDEX [Suspect]
     Active Substance: ANASTROZOLE
     Indication: Breast cancer metastatic
     Route: 048
     Dates: start: 20200413, end: 20210822
  6. HYDROCORTISONE [Concomitant]
     Active Substance: HYDROCORTISONE\HYDROCORTISONE ACETATE
     Indication: Adverse event
     Dosage: 1 APPLICATION
     Route: 061
     Dates: start: 20210928, end: 20211004
  7. CALCIUM CARBONATE [Concomitant]
     Active Substance: CALCIUM CARBONATE
     Indication: Bone pain
     Route: 048
     Dates: start: 20220608, end: 20220707
  8. URSODIOL [Concomitant]
     Active Substance: URSODIOL
     Indication: Hepatic encephalopathy
     Route: 048
     Dates: start: 20221227, end: 20230101

REACTIONS (2)
  - Dermatitis allergic [Unknown]
  - Rash [Unknown]

NARRATIVE: CASE EVENT DATE: 20210928
